FAERS Safety Report 20448288 (Version 6)
Quarter: 2022Q2

REPORT INFORMATION
  Report Type: Report from Study
  Country: KW (occurrence: KW)
  Receive Date: 20220209
  Receipt Date: 20220607
  Transmission Date: 20220720
  Serious: Yes (Congenital Anomaly)
  Sender: FDA-Public Use
  Company Number: KW-NOVARTISPH-NVSC2022KW025567

PATIENT
  Age: 2 Month
  Sex: Female
  Weight: 5.5 kg

DRUGS (5)
  1. COSENTYX [Suspect]
     Active Substance: SECUKINUMAB
     Indication: Foetal exposure during pregnancy
     Dosage: UNK (MATERNAL EXPOSURE)
     Route: 064
  2. FOLIC ACID [Concomitant]
     Active Substance: FOLIC ACID
     Indication: Foetal exposure during pregnancy
     Dosage: UNK UNK, QD (MATERNAL EXPOSURE)
     Route: 064
     Dates: start: 202105
  3. CALCIUM [Concomitant]
     Active Substance: CALCIUM
     Indication: Foetal exposure during pregnancy
     Dosage: UNK, QD (MATERNAL EXPOSURE)
     Route: 064
     Dates: start: 202107
  4. FERRIC CHLORID [Concomitant]
     Indication: Foetal exposure during pregnancy
     Dosage: UNK UNK, QD (MATERNAL EXPOSURE)
     Route: 064
     Dates: start: 202107
  5. NITROFURANTOIN [Concomitant]
     Active Substance: NITROFURANTOIN
     Indication: Product used for unknown indication
     Route: 065

REACTIONS (3)
  - Kidney duplex [Unknown]
  - Kidney enlargement [Recovering/Resolving]
  - Foetal exposure during pregnancy [Unknown]
